FAERS Safety Report 19593059 (Version 4)
Quarter: 2022Q3

REPORT INFORMATION
  Report Type: Report from Study
  Country: AU (occurrence: AU)
  Receive Date: 20210722
  Receipt Date: 20220909
  Transmission Date: 20221027
  Serious: Yes (Hospitalization)
  Sender: FDA-Public Use
  Company Number: AU-JNJFOC-20201254867

PATIENT
  Age: 77 Year
  Sex: Female
  Weight: 74 kg

DRUGS (5)
  1. DARATUMUMAB [Suspect]
     Active Substance: DARATUMUMAB
     Indication: Plasma cell myeloma
     Route: 041
     Dates: start: 20201118
  2. DARATUMUMAB [Suspect]
     Active Substance: DARATUMUMAB
     Dosage: C6 X 2 DOSES
     Route: 041
     Dates: start: 20210428, end: 20210510
  3. DARATUMUMAB [Suspect]
     Active Substance: DARATUMUMAB
     Dosage: C7 X 1 DOSE?NEXT DOSE: 13-JUL-2021
     Route: 041
     Dates: start: 20210629
  4. DARATUMUMAB [Suspect]
     Active Substance: DARATUMUMAB
     Dosage: C8 D1 DOSE
     Route: 041
     Dates: start: 20210715
  5. DARATUMUMAB [Suspect]
     Active Substance: DARATUMUMAB
     Dosage: NEXT DOSE: 28-JUN-2022
     Route: 041
     Dates: start: 20220531

REACTIONS (3)
  - Malaise [Unknown]
  - Weight increased [Unknown]
  - Inappropriate schedule of product administration [Unknown]

NARRATIVE: CASE EVENT DATE: 20220823
